FAERS Safety Report 9104812 (Version 1)
Quarter: 2013Q1

REPORT INFORMATION
  Report Type: Spontaneous
  Country: GR (occurrence: GR)
  Receive Date: 20130220
  Receipt Date: 20130220
  Transmission Date: 20140127
  Serious: Yes (Death)
  Sender: FDA-Public Use
  Company Number: GR-JNJFOC-20130208494

PATIENT
  Sex: Female

DRUGS (2)
  1. STELARA [Suspect]
     Indication: PSORIASIS
     Route: 058
     Dates: start: 201204
  2. UNSPECIFED MEDICATIONS [Concomitant]
     Indication: HEPATITIS B
     Route: 065

REACTIONS (1)
  - Hepatitis B [Fatal]
